FAERS Safety Report 18211322 (Version 1)
Quarter: 2020Q3

REPORT INFORMATION
  Report Type: Spontaneous
  Country: US (occurrence: US)
  Receive Date: 20200831
  Receipt Date: 20200831
  Transmission Date: 20201103
  Serious: Yes (Other)
  Sender: FDA-Public Use
  Company Number: US-BEH-2020121503

PATIENT
  Sex: Female

DRUGS (12)
  1. HAEGARDA [Suspect]
     Active Substance: HUMAN C1-ESTERASE INHIBITOR
     Indication: HEREDITARY ANGIOEDEMA
     Dosage: 4000 INTERNATIONAL UNIT, BIW (2 X 2000)
     Route: 058
     Dates: start: 2019
  2. XARELTO [Concomitant]
     Active Substance: RIVAROXABAN
     Route: 065
  3. EPINEPHRINE. [Concomitant]
     Active Substance: EPINEPHRINE
     Route: 065
  4. EPITOL [Concomitant]
     Active Substance: CARBAMAZEPINE
     Route: 065
  5. FIRAZYR [Concomitant]
     Active Substance: ICATIBANT ACETATE
     Route: 065
  6. RANITIDINE HCL [Concomitant]
     Active Substance: RANITIDINE HYDROCHLORIDE
     Route: 065
  7. CARBAMAZEPINE. [Concomitant]
     Active Substance: CARBAMAZEPINE
     Route: 065
  8. LIDOCAINE;PRILOCAINE [Concomitant]
     Route: 065
  9. VENTOLIN HFA [Concomitant]
     Active Substance: ALBUTEROL SULFATE
     Route: 065
  10. HYDROCHLOROTHIAZIDE. [Concomitant]
     Active Substance: HYDROCHLOROTHIAZIDE
     Route: 065
  11. HAEGARDA [Suspect]
     Active Substance: HUMAN C1-ESTERASE INHIBITOR
     Dosage: UNK
     Route: 058
  12. HAEGARDA [Suspect]
     Active Substance: HUMAN C1-ESTERASE INHIBITOR
     Indication: HEREDITARY ANGIOEDEMA
     Dosage: 3000 INTERNATIONAL UNIT, BIW
     Route: 058
     Dates: start: 2019

REACTIONS (7)
  - Fall [Unknown]
  - Food allergy [Unknown]
  - Lip swelling [Unknown]
  - No adverse event [Unknown]
  - Hereditary angioedema [Unknown]
  - Scratch [Unknown]
  - Product dose omission issue [Unknown]
